FAERS Safety Report 13082815 (Version 2)
Quarter: 2017Q2

REPORT INFORMATION
  Report Type: Report from Study
  Country: US (occurrence: US)
  Receive Date: 20170103
  Receipt Date: 20170525
  Transmission Date: 20170830
  Serious: Yes (Other)
  Sender: FDA-Public Use
  Company Number: US-BIOGEN-2014BI029438

PATIENT
  Age: 54 Year
  Sex: Female

DRUGS (7)
  1. AVONEX [Suspect]
     Active Substance: INTERFERON BETA-1A
     Route: 030
     Dates: start: 201410
  2. AVONEX [Suspect]
     Active Substance: INTERFERON BETA-1A
     Indication: MULTIPLE SCLEROSIS
     Route: 030
     Dates: start: 20140313
  3. AVONEX [Suspect]
     Active Substance: INTERFERON BETA-1A
     Route: 030
     Dates: start: 20141103
  4. AVONEX [Suspect]
     Active Substance: INTERFERON BETA-1A
     Route: 030
     Dates: end: 20140801
  5. AVONEX [Suspect]
     Active Substance: INTERFERON BETA-1A
     Route: 030
     Dates: end: 201611
  6. AVONEX [Suspect]
     Active Substance: INTERFERON BETA-1A
     Route: 030
     Dates: start: 20140314
  7. AVONEX [Suspect]
     Active Substance: INTERFERON BETA-1A
     Route: 030
     Dates: start: 20140410

REACTIONS (31)
  - Visual impairment [Recovered/Resolved]
  - Abasia [Recovered/Resolved]
  - Limb injury [Not Recovered/Not Resolved]
  - Anal incontinence [Not Recovered/Not Resolved]
  - Anxiety [Unknown]
  - Dysstasia [Not Recovered/Not Resolved]
  - Injection site haemorrhage [Recovered/Resolved]
  - Impaired healing [Recovered/Resolved]
  - Headache [Recovered/Resolved]
  - Pyrexia [Recovered/Resolved]
  - Periarthritis [Not Recovered/Not Resolved]
  - Blindness [Recovered/Resolved]
  - Drug administered at inappropriate site [Recovered/Resolved]
  - Injection site scar [Not Recovered/Not Resolved]
  - Intentional product misuse [Recovered/Resolved]
  - Influenza [Recovered/Resolved]
  - Dysarthria [Not Recovered/Not Resolved]
  - Multiple sclerosis relapse [Not Recovered/Not Resolved]
  - Influenza like illness [Recovered/Resolved]
  - Injection site bruising [Recovered/Resolved]
  - Fall [Recovered/Resolved]
  - Hypoaesthesia [Not Recovered/Not Resolved]
  - Injection site mass [Not Recovered/Not Resolved]
  - Myalgia [Not Recovered/Not Resolved]
  - Optic neuritis [Not Recovered/Not Resolved]
  - Multiple sclerosis [Not Recovered/Not Resolved]
  - Balance disorder [Not Recovered/Not Resolved]
  - Musculoskeletal pain [Not Recovered/Not Resolved]
  - Tinnitus [Recovered/Resolved]
  - Chills [Recovered/Resolved]
  - Injection site pain [Recovered/Resolved]

NARRATIVE: CASE EVENT DATE: 2014
